FAERS Safety Report 9059461 (Version 1)
Quarter: 2013Q1

REPORT INFORMATION
  Report Type: Spontaneous
  Country: US (occurrence: US)
  Receive Date: 20130212
  Receipt Date: 20130212
  Transmission Date: 20140127
  Serious: No
  Sender: FDA-Public Use
  Company Number: US-009507513-1302USA003834

PATIENT
  Age: 19 Year
  Sex: Female
  Weight: 54.42 kg

DRUGS (1)
  1. NUVARING [Suspect]
     Indication: CONTRACEPTION
     Dosage: 1 RING FOR 3 WEEKS FOLLOWED BY A WEEK FREE BREAK
     Route: 067

REACTIONS (2)
  - Device expulsion [Unknown]
  - Inappropriate schedule of drug administration [Unknown]
